FAERS Safety Report 5233898-8 (Version None)
Quarter: 2007Q1

REPORT INFORMATION
  Report Type: 
  Country: None (occurrence: None)
  Receive Date: 20070208
  Receipt Date: 20070202
  Transmission Date: 20070707
  Serious: Yes (Disabling)
  Sender: FDA-Public Use
  Company Number: 2007UW02305

PATIENT
  Age: 72 Year
  Sex: Male

DRUGS (4)
  1. CRESTOR [Suspect]
     Route: 048
     Dates: start: 20061001, end: 20070126
  2. NORVIR [Concomitant]
  3. REYATAZ [Concomitant]
  4. TRUVADA [Concomitant]

REACTIONS (2)
  - BRONCHITIS [None]
  - RENAL TUBULAR NECROSIS [None]
